FAERS Safety Report 25790418 (Version 2)
Quarter: 2025Q3

REPORT INFORMATION
  Report Type: Spontaneous
  Country: US (occurrence: US)
  Receive Date: 20250911
  Receipt Date: 20250925
  Transmission Date: 20251021
  Serious: Yes (Death, Life-Threatening, Hospitalization)
  Sender: TEVA
  Company Number: US-TEVA-VS-3368626

PATIENT
  Age: 66 Year
  Sex: Male

DRUGS (4)
  1. VANCOMYCIN [Suspect]
     Active Substance: VANCOMYCIN
     Indication: Proteus infection
     Route: 065
  2. METHYLPREDNISOLONE [Suspect]
     Active Substance: METHYLPREDNISOLONE
     Indication: Rash
     Route: 042
  3. CEFEPIME [Suspect]
     Active Substance: CEFEPIME HYDROCHLORIDE
     Indication: Proteus infection
     Route: 065
  4. PIPERACILLIN AND TAZOBACTAM [Suspect]
     Active Substance: PIPERACILLIN SODIUM\TAZOBACTAM SODIUM
     Indication: Bacteraemia
     Route: 065

REACTIONS (17)
  - SJS-TEN overlap [Fatal]
  - Herpes simplex [Unknown]
  - Septic shock [Unknown]
  - Acute kidney injury [Unknown]
  - Acinetobacter infection [Unknown]
  - Subcutaneous emphysema [Unknown]
  - Dehydration [Unknown]
  - Pneumomediastinum [Unknown]
  - Anuria [Unknown]
  - Anaemia [Unknown]
  - Acidosis [Unknown]
  - Myocardial injury [Unknown]
  - Oliguria [Unknown]
  - Acute respiratory distress syndrome [Unknown]
  - Drug ineffective [Unknown]
  - Encephalopathy [Unknown]
  - Shock [Unknown]
